FAERS Safety Report 20244377 (Version 1)
Quarter: 2021Q4

REPORT INFORMATION
  Report Type: Spontaneous
  Country: US (occurrence: US)
  Receive Date: 20211229
  Receipt Date: 20211229
  Transmission Date: 20220303
  Serious: No
  Sender: FDA-Public Use
  Company Number: US-CHIESI-2021CHF00569

PATIENT
  Sex: Female

DRUGS (3)
  1. CUROSURF [Suspect]
     Active Substance: PORACTANT ALFA
     Indication: Product used for unknown indication
     Dosage: UNK
  2. CUROSURF [Suspect]
     Active Substance: PORACTANT ALFA
     Dosage: UNK
  3. SURVANTA [Concomitant]
     Active Substance: BERACTANT
     Indication: Product used for unknown indication

REACTIONS (2)
  - Product use issue [Recovered/Resolved]
  - No adverse event [Recovered/Resolved]
